FAERS Safety Report 15981827 (Version 3)
Quarter: 2019Q1

REPORT INFORMATION
  Report Type: Spontaneous
  Country: US (occurrence: US)
  Receive Date: 20190219
  Receipt Date: 20190301
  Transmission Date: 20190418
  Serious: Yes (Other)
  Sender: FDA-Public Use
  Company Number: US-ASTRAZENECA-2018SF15118

PATIENT
  Age: 20390 Day
  Sex: Female
  Weight: 100 kg

DRUGS (17)
  1. LISINOPRIL. [Concomitant]
     Active Substance: LISINOPRIL
  2. SODIUM CHLORIDE. [Concomitant]
     Active Substance: SODIUM CHLORIDE
  3. METOCLOPRAMIDE. [Concomitant]
     Active Substance: METOCLOPRAMIDE
  4. CLONIDINE. [Concomitant]
     Active Substance: CLONIDINE
  5. ACETAMINOPHEN. [Concomitant]
     Active Substance: ACETAMINOPHEN
  6. CLONIDINE. [Concomitant]
     Active Substance: CLONIDINE
  7. RANITIDINE. [Concomitant]
     Active Substance: RANITIDINE
  8. HEPARIN [Concomitant]
     Active Substance: HEPARIN SODIUM
  9. PROMETHAZINE [Concomitant]
     Active Substance: PROMETHAZINE\PROMETHAZINE HYDROCHLORIDE
  10. GLUCAGON. [Concomitant]
     Active Substance: GLUCAGON
  11. PREVACID 24 HR [Suspect]
     Active Substance: LANSOPRAZOLE
     Route: 065
     Dates: start: 20100101, end: 20151031
  12. CARVEDILOL. [Concomitant]
     Active Substance: CARVEDILOL
  13. FUROSEMIDE. [Concomitant]
     Active Substance: FUROSEMIDE
  14. NEXIUM 24HR [Suspect]
     Active Substance: ESOMEPRAZOLE MAGNESIUM
     Route: 048
  15. PRILOSEC OTC [Suspect]
     Active Substance: OMEPRAZOLE MAGNESIUM
     Route: 048
     Dates: start: 20100101, end: 20151031
  16. ERGOCALCIFEROL. [Concomitant]
     Active Substance: ERGOCALCIFEROL
  17. ONDANSETRON [Concomitant]
     Active Substance: ONDANSETRON

REACTIONS (5)
  - Chronic kidney disease [Unknown]
  - Acute kidney injury [Unknown]
  - Renal failure [Unknown]
  - End stage renal disease [Unknown]
  - Renal injury [Unknown]

NARRATIVE: CASE EVENT DATE: 20170712
